FAERS Safety Report 15458304 (Version 1)
Quarter: 2018Q4

REPORT INFORMATION
  Report Type: Spontaneous
  Country: US (occurrence: US)
  Receive Date: 20181003
  Receipt Date: 20181003
  Transmission Date: 20190204
  Serious: No
  Sender: FDA-Public Use
  Company Number: US-PFIZER INC-2017531293

PATIENT
  Age: 27 Year
  Sex: Female

DRUGS (2)
  1. GENOTROPIN MQ [Suspect]
     Active Substance: SOMATROPIN
     Dosage: 2MG, 6 TIMES A WEEK, INJECTIONS
  2. GENOTROPIN MQ [Suspect]
     Active Substance: SOMATROPIN
     Dosage: 2 MG, DAILY
     Dates: start: 20130408

REACTIONS (3)
  - Tri-iodothyronine decreased [Unknown]
  - Fatigue [Unknown]
  - Lipids increased [Unknown]

NARRATIVE: CASE EVENT DATE: 20180814
